FAERS Safety Report 21741755 (Version 1)
Quarter: 2022Q4

REPORT INFORMATION
  Report Type: Spontaneous
  Country: AU (occurrence: AU)
  Receive Date: 20221216
  Receipt Date: 20221216
  Transmission Date: 20230113
  Serious: Yes (Hospitalization)
  Sender: FDA-Public Use
  Company Number: AU-PFIZER INC-PV202200122584

PATIENT
  Age: 58 Year
  Sex: Female

DRUGS (4)
  1. CLOZAPINE [Suspect]
     Active Substance: CLOZAPINE
     Indication: Schizophrenia
     Dosage: UNK
     Dates: start: 20221111
  2. CLOZAPINE [Suspect]
     Active Substance: CLOZAPINE
     Dosage: 200 MG
  3. CLOZAPINE [Suspect]
     Active Substance: CLOZAPINE
     Dosage: 225 MG, 1X/DAY (NOCTE)
     Dates: end: 20221130
  4. DESVENLAFAXINE SUCCINATE [Suspect]
     Active Substance: DESVENLAFAXINE SUCCINATE
     Indication: Depression
     Dosage: 50 MG, 1X/DAY(NOCTE )

REACTIONS (12)
  - Myocarditis [Unknown]
  - Echocardiogram abnormal [Unknown]
  - Pyrexia [Unknown]
  - Bladder discomfort [Unknown]
  - Urine abnormality [Unknown]
  - White blood cells urine positive [Unknown]
  - Ejection fraction decreased [Unknown]
  - Liver function test abnormal [Unknown]
  - Left ventricular dysfunction [Unknown]
  - Systolic dysfunction [Unknown]
  - Pollakiuria [Unknown]
  - Neutrophil count increased [Unknown]

NARRATIVE: CASE EVENT DATE: 20221125
